FAERS Safety Report 6107784-5 (Version None)
Quarter: 2009Q1

REPORT INFORMATION
  Report Type: 
  Country: None (occurrence: None)
  Receive Date: 20090305
  Receipt Date: 20090305
  Transmission Date: 20090719
  Serious: Yes (Hospitalization)
  Sender: FDA-Public Use
  Company Number: None

PATIENT
  Age: 59 Year
  Sex: Male
  Weight: 83.14 kg

DRUGS (1)
  1. LISINOPRIL [Suspect]
     Indication: HYPERTENSION
     Dosage: 30 MG EVERY DAY PO
     Route: 048
     Dates: start: 20080702, end: 20081021

REACTIONS (4)
  - ANGIOEDEMA [None]
  - EPIGLOTTIC OEDEMA [None]
  - OROPHARYNGEAL SWELLING [None]
  - SWOLLEN TONGUE [None]
